FAERS Safety Report 4872799-1 (Version None)
Quarter: 2005Q4

REPORT INFORMATION
  Report Type: 
  Country: None (occurrence: None)
  Receive Date: 20051229
  Receipt Date: 20051128
  Transmission Date: 20060501
  Serious: Yes (Other)
  Sender: FDA-Public Use
  Company Number: 2005BH003585

PATIENT
  Sex: Female

DRUGS (17)
  1. GAMMAGARD S/D [Suspect]
  2. INJECTABLE GLOBULIN (BAYER) [Suspect]
  3. INJECTABLE GLOBULIN (JOHNSON + JOHNSON CONSUMER COMPANIES) [Suspect]
  4. INJECTABLE GLOBULIN (ORTHO-CLINICAL DIAGNOSTIC, INC) [Suspect]
  5. INJECTABLE GLOBULIN (ABBOTT LABORATORIES, INC.) [Suspect]
  6. INJECTABLE GLOBULIN (AVENTIS PASTEUR, INC.) [Suspect]
  7. INJECTABLE GLOBULIN (BIOPORT CORPORATION) [Suspect]
  8. INJECTABLE GLOBULIN (DOW CHEMICAL COMPANY) [Suspect]
  9. INJECTABLE GLOBULIN (ELI LILLY AND COMPANY) [Suspect]
  10. INJECTABLE GLOBULIN (G.D.L. INTERNATIONAL, INC.) [Suspect]
  11. INJECTABLE GLOBULIN (GLAXOSMITHKLINE) [Suspect]
  12. INJECTABLE GLOBULIN (KING PHARMACEUTICALS, INC.) [Suspect]
  13. INJECTABLE GLOBULIN (MEDEVA PHARMACEUTICALS, INC.) [Suspect]
  14. INJECTABLE GLOBULIN (MERCK + COMPANY, INC.) [Suspect]
  15. INJECTABLE GLOBULIN (SIGMA-ALDRICH COMPANY) [Suspect]
  16. INJECTABLE GLOBULIN (SPECTRUM CHEMICAL MANUFACTURING CORP.) [Suspect]
  17. INJECTABLE GLOBULIN (AMERICAN HOME PRODUCTS CORPORATION) [Suspect]

REACTIONS (2)
  - DRUG EXPOSURE DURING PREGNANCY [None]
  - METAL POISONING [None]
